FAERS Safety Report 7128733 (Version 8)
Quarter: 2015Q4

REPORT INFORMATION
  Report Type: Spontaneous
  Country: US (occurrence: US)
  Receive Date: 20090924
  Receipt Date: 20151123
  Transmission Date: 20160305
  Serious: Yes (Hospitalization, Disabling)
  Sender: FDA-Public Use
  Company Number: US-BAYER-200933377NA

PATIENT
  Age: 29 Year
  Sex: Female
  Weight: 78.01 kg

DRUGS (18)
  1. YASMIN [Suspect]
     Active Substance: DROSPIRENONE\ETHINYL ESTRADIOL
     Indication: ORAL CONTRACEPTION
     Dosage: UNK
     Route: 048
     Dates: start: 2004, end: 2005
  2. BACTRIM DS [Concomitant]
     Active Substance: SULFAMETHOXAZOLE\TRIMETHOPRIM
  3. ATIVAN [Concomitant]
     Active Substance: LORAZEPAM
  4. PANTOPRAZOLE [Concomitant]
     Active Substance: PANTOPRAZOLE SODIUM
  5. KENALOG [Concomitant]
     Active Substance: TRIAMCINOLONE ACETONIDE
     Dosage: 60 MG, UNK
     Route: 030
     Dates: start: 20050921
  6. EXCEDRIN MIGRAINE [Concomitant]
     Active Substance: ACETAMINOPHEN\ASPIRIN\CAFFEINE
  7. BROMPHENIRAMINE MALEATE/PHENYLEPHRINE HCL [Concomitant]
  8. FLUCONAZOLE. [Concomitant]
     Active Substance: FLUCONAZOLE
     Dosage: 150 MG, UNK
     Route: 048
     Dates: start: 20050921
  9. ZYRTEK [Concomitant]
     Active Substance: CETIRIZINE HYDROCHLORIDE
  10. AGGRENOX [Concomitant]
     Active Substance: ASPIRIN\DIPYRIDAMOLE
  11. PLAVIX [Concomitant]
     Active Substance: CLOPIDOGREL BISULFATE
  12. DECADRON [DEXAMETHASONE ACETATE] [Concomitant]
     Dosage: 4 MG, UNK
     Route: 030
     Dates: start: 20050921
  13. AMOXICILLIN. [Concomitant]
     Active Substance: AMOXICILLIN
     Indication: RESPIRATORY TRACT INFECTION
  14. TYLENOL COLD [Concomitant]
     Active Substance: ACETAMINOPHEN\CHLORPHENIRAMINE MALEATE\PHENYLPROPANOLAMINE
  15. ASA [Concomitant]
     Active Substance: ASPIRIN
     Indication: CEREBROVASCULAR ACCIDENT
     Dosage: 81 MG
     Route: 065
  16. ZYRTEC [Concomitant]
     Active Substance: CETIRIZINE HYDROCHLORIDE
  17. IBUPROFEN. [Concomitant]
     Active Substance: IBUPROFEN
  18. BIAXIN [Concomitant]
     Active Substance: CLARITHROMYCIN

REACTIONS (16)
  - Peripheral sensorimotor neuropathy [Unknown]
  - Embolism arterial [None]
  - Pain [Unknown]
  - Visual impairment [Unknown]
  - Dysarthria [Unknown]
  - Quadriplegia [Unknown]
  - Agraphia [Unknown]
  - Communication disorder [Unknown]
  - Hemiparesis [Unknown]
  - Paraplegia [Unknown]
  - Cerebrovascular accident [Recovering/Resolving]
  - Learning disorder [Unknown]
  - Hemiplegia [Unknown]
  - Cognitive disorder [Unknown]
  - Alopecia [Unknown]
  - Aphasia [Unknown]

NARRATIVE: CASE EVENT DATE: 20051114
